FAERS Safety Report 21143972 (Version 1)
Quarter: 2022Q3

REPORT INFORMATION
  Report Type: Spontaneous
  Country: US (occurrence: US)
  Receive Date: 20220728
  Receipt Date: 20220728
  Transmission Date: 20221027
  Serious: No
  Sender: FDA-Public Use
  Company Number: US-MYLANLABS-2022M1080659

PATIENT
  Sex: Female
  Weight: 192.78 kg

DRUGS (1)
  1. SEMGLEE (INSULIN GLARGINE-YFGN) [Suspect]
     Active Substance: INSULIN GLARGINE-YFGN
     Indication: Type 2 diabetes mellitus
     Dosage: 35 INTERNATIONAL UNIT, QD (35 UNITS/DAY)
     Route: 058

REACTIONS (2)
  - Stress [Unknown]
  - Device defective [Unknown]
